FAERS Safety Report 21840084 (Version 1)
Quarter: 2023Q1

REPORT INFORMATION
  Report Type: Report from Study
  Country: US (occurrence: US)
  Receive Date: 20230110
  Receipt Date: 20230110
  Transmission Date: 20230417
  Serious: No
  Sender: FDA-Public Use
  Company Number: US-ABBVIE-4220430

PATIENT
  Sex: Male

DRUGS (3)
  1. SKYRIZI [Suspect]
     Active Substance: RISANKIZUMAB-RZAA
     Indication: Dermatitis
     Dosage: STRENGTH 150 MILLIGRAM PER MILLILITER
     Route: 058
  2. DUPIXENT [Suspect]
     Active Substance: DUPILUMAB
     Indication: Dermatitis
     Dosage: AT 300 MILLIGRAM PER 2 ML STRENGTH, SOLUTION FOR INJECTION, AT A DOSE OF 300 MILLIGRAM SUBCUTANEOUS
     Route: 058
     Dates: start: 202101
  3. COSENTYX [Concomitant]
     Active Substance: SECUKINUMAB
     Indication: Psoriasis

REACTIONS (1)
  - Product use in unapproved indication [Unknown]
